FAERS Safety Report 5569950-7 (Version None)
Quarter: 2007Q4

REPORT INFORMATION
  Report Type: 
  Country: None (occurrence: None)
  Receive Date: 20071218
  Receipt Date: 20071210
  Transmission Date: 20080405
  Serious: Yes (Other)
  Sender: FDA-Public Use
  Company Number: 2007SP024666

PATIENT
  Age: 29 Year
  Sex: Male
  Weight: 48 kg

DRUGS (3)
  1. PEG-INTRON [Suspect]
     Indication: HEPATITIS C
     Dosage: 80 MCG;QW;SC
     Route: 058
     Dates: start: 20070306, end: 20071110
  2. REBETOL [Suspect]
     Indication: HEPATITIS C
     Dosage: 800 MG;QD;PO
     Route: 048
     Dates: start: 20070307, end: 20071110
  3. SUBUTEX (BUPRENORPHIE HYDROCHLORIDE) [Concomitant]

REACTIONS (1)
  - ENDOCARDITIS BACTERIAL [None]
